FAERS Safety Report 9173467 (Version 1)
Quarter: 2013Q1

REPORT INFORMATION
  Report Type: Spontaneous
  Country: IT (occurrence: None)
  Receive Date: 20130315
  Receipt Date: 20130315
  Transmission Date: 20140127
  Serious: Yes (Death)
  Sender: FDA-Public Use
  Company Number: 1632673

PATIENT
  Sex: 0

DRUGS (3)
  1. EPIRUBICIN HYDROCHLORIDE [Suspect]
     Indication: CERVIX CARCINOMA
     Dosage: 100 MG/M 2 MILLIGRAM(S)/SQ. METER ( CYCLICAL )
  2. PACLITAXEL [Suspect]
     Indication: CERVIX CARCINOMA
     Dosage: 175 MG/M 2 MILLIGRAM(S)/SQ. METER ( CYCLICAL )
  3. CISPLATIN [Suspect]
     Indication: CERVIX CARCINOMA
     Dosage: 100 MG/M 2 MILLIGRAM(S)/SQ. METER ( CYCLICAL )

REACTIONS (1)
  - Toxicity to various agents [None]
